FAERS Safety Report 9479654 (Version 2)
Quarter: 2013Q3

REPORT INFORMATION
  Report Type: Report from Study
  Country: US (occurrence: US)
  Receive Date: 20130827
  Receipt Date: 20130827
  Transmission Date: 20140515
  Serious: Yes (Hospitalization)
  Sender: FDA-Public Use
  Company Number: PHHO2009US09225

PATIENT
  Age: 69 Year
  Sex: Male
  Weight: 98.2 kg

DRUGS (14)
  1. ALISKIREN [Suspect]
     Indication: CARDIOVASCULAR DISORDER
     Route: 048
     Dates: start: 20080624
  2. AMLODIPINE [Concomitant]
     Indication: HYPERTENSION
     Dosage: 10 MG, QD
  3. VITAMIN C [Concomitant]
  4. CALCITRIOL [Concomitant]
     Indication: PROPHYLAXIS
     Dosage: 0.25 UG, QD
  5. COREG [Concomitant]
     Indication: CARDIAC FAILURE CONGESTIVE
     Dosage: 6.125 MG, QD
  6. CENTRUM SILVER [Concomitant]
  7. ZETIA [Concomitant]
  8. LASIX [Concomitant]
     Indication: FLUID RETENTION
     Dosage: 40 MG, BID
  9. GLIMEPIRIDE [Concomitant]
  10. METOLAZONE [Concomitant]
     Indication: FLUID RETENTION
     Dosage: 25 MG, WF
  11. CRESTOR [Concomitant]
  12. JANUVIA [Concomitant]
  13. COUMADINE [Concomitant]
     Indication: PROPHYLAXIS
     Dosage: 2 OR 4 MG QD
  14. METOPROLOL [Concomitant]

REACTIONS (7)
  - Cardiac failure congestive [Unknown]
  - Atrial fibrillation [Recovering/Resolving]
  - Dyspnoea [Unknown]
  - Renal failure acute [Unknown]
  - Renal failure chronic [Unknown]
  - Bradycardia [Unknown]
  - Disease progression [Not Recovered/Not Resolved]
